FAERS Safety Report 6274578-X (Version None)
Quarter: 2009Q3

REPORT INFORMATION
  Report Type: 
  Country: None (occurrence: None)
  Receive Date: 20090720
  Receipt Date: 20090713
  Transmission Date: 20100115
  Serious: Yes (Hospitalization)
  Sender: FDA-Public Use
  Company Number: US-AVENTIS-200916050US

PATIENT
  Age: 74 Year
  Sex: Female

DRUGS (4)
  1. LANTUS [Suspect]
     Dosage: DOSE: 19-20
     Route: 058
     Dates: end: 20090601
  2. LANTUS [Suspect]
     Dosage: DOSE: 25 U
     Route: 058
     Dates: start: 20090601, end: 20090601
  3. LANTUS [Suspect]
     Dosage: DOSE: 17 U
     Route: 058
     Dates: start: 20090601
  4. NOVOLOG [Concomitant]
     Dosage: DOSE: UNK

REACTIONS (7)
  - BLOOD GLUCOSE DECREASED [None]
  - HEADACHE [None]
  - HOSPITALISATION [None]
  - HOT FLUSH [None]
  - MALAISE [None]
  - POOR QUALITY SLEEP [None]
  - WEIGHT DECREASED [None]
